FAERS Safety Report 8200656 (Version 4)
Quarter: 2012Q4

REPORT INFORMATION
  Report Type: 
  Country: US (occurrence: US)
  Receive Date: 20111026
  Receipt Date: 20121009
  Transmission Date: 20130627
  Serious: Yes (Hospitalization)
  Sender: FDA-Public Use
  Company Number: US-ALEXION-A201101567

PATIENT
  Age: 40 Year
  Sex: Male

DRUGS (5)
  1. SOLIRIS 300MG [Suspect]
     Indication: PAROXYSMAL NOCTURNAL HAEMOGLOBINURIA
     Dosage: 900 mg, q2w
     Route: 042
  2. TYLENOL [Concomitant]
     Indication: PREMEDICATION
     Dosage: 650 mg UNK
     Route: 048
  3. SYNTHROID [Concomitant]
     Dosage: 200 ug, qd
  4. CALCIUM [Concomitant]
     Dosage: UNK, 1 capsule qd
  5. MENINGOCOCCAL POLYSACCHARIDE VACCINE A [Suspect]
     Indication: IMMUNISATION
     Dosage: UNK
     Dates: start: 2012, end: 2012

REACTIONS (7)
  - Thyroid cancer [Recovered/Resolved]
  - Anaemia [Unknown]
  - Blood count abnormal [Unknown]
  - Weight decreased [Unknown]
  - Dysphagia [Not Recovered/Not Resolved]
  - Haemolysis [Not Recovered/Not Resolved]
  - Fatigue [Unknown]
